FAERS Safety Report 7608540-9 (Version None)
Quarter: 2011Q3

REPORT INFORMATION
  Report Type: 
  Country: None (occurrence: None)
  Receive Date: 20110714
  Receipt Date: 20110704
  Transmission Date: 20111222
  Serious: Yes (Other)
  Sender: FDA-Public Use
  Company Number: PHHY2010CA64910

PATIENT
  Sex: Female

DRUGS (1)
  1. SANDOSTATIN LAR [Suspect]
     Indication: NEUROENDOCRINE TUMOUR
     Dosage: 30 MG, EVERY 4 WEEKS
     Route: 030
     Dates: start: 20100728

REACTIONS (13)
  - BLOOD PRESSURE SYSTOLIC INCREASED [None]
  - GAIT DISTURBANCE [None]
  - MALAISE [None]
  - DIZZINESS [None]
  - ASTHENIA [None]
  - BLOOD GLUCOSE INCREASED [None]
  - NAUSEA [None]
  - AMNESIA [None]
  - VOMITING [None]
  - FATIGUE [None]
  - DIARRHOEA [None]
  - HEADACHE [None]
  - ABDOMINAL PAIN UPPER [None]
